FAERS Safety Report 18547240 (Version 5)
Quarter: 2025Q2

REPORT INFORMATION
  Report Type: Report from Study
  Country: US (occurrence: US)
  Receive Date: 20201125
  Receipt Date: 20250612
  Transmission Date: 20250716
  Serious: Yes (Other)
  Sender: TAKEDA
  Company Number: US-TAKEDA-2020TUS050900

PATIENT
  Age: 17 Year
  Sex: Male
  Weight: 56 kg

DRUGS (16)
  1. VEDOLIZUMAB [Suspect]
     Active Substance: VEDOLIZUMAB
     Indication: Colitis ulcerative
     Dates: start: 20201022, end: 20201022
  2. VEDOLIZUMAB [Suspect]
     Active Substance: VEDOLIZUMAB
     Dosage: 300 MILLIGRAM, Q7WEEKS
  3. VEDOLIZUMAB [Suspect]
     Active Substance: VEDOLIZUMAB
  4. VEDOLIZUMAB [Suspect]
     Active Substance: VEDOLIZUMAB
     Dosage: 300 MILLIGRAM, Q6WEEKS
  5. LIALDA [Suspect]
     Active Substance: MESALAMINE
     Indication: Colitis ulcerative
     Dosage: 2.4 GRAM, BID
     Dates: start: 20191025
  6. AZITHROMYCIN [Concomitant]
     Active Substance: AZITHROMYCIN
     Indication: Paediatric acute-onset neuropsychiatric syndrome
     Dosage: 250 MILLIGRAM, 3/WEEK
     Dates: start: 201810
  7. AZITHROMYCIN [Concomitant]
     Active Substance: AZITHROMYCIN
     Indication: Rheumatic fever
  8. AZITHROMYCIN [Concomitant]
     Active Substance: AZITHROMYCIN
     Indication: Prophylaxis
  9. UCERIS [Concomitant]
     Active Substance: BUDESONIDE
     Indication: Colitis ulcerative
     Dosage: 9 MILLIGRAM, QD
     Dates: start: 20200121
  10. VITAMIN D [Concomitant]
     Active Substance: VITAMIN D NOS
     Dosage: 2000 INTERNATIONAL UNIT, QD
  11. VSL [Concomitant]
     Indication: Colitis ulcerative
     Dosage: UNK UNK, QD
     Dates: start: 20191015
  12. ALBUTEROL [Concomitant]
     Active Substance: ALBUTEROL
     Indication: Asthma
     Dosage: UNK UNK, 1/WEEK
     Dates: start: 2005
  13. BUDESONIDE [Concomitant]
     Active Substance: BUDESONIDE
     Dosage: 9 MILLIGRAM, QD
  14. MESALAMINE [Concomitant]
     Active Substance: MESALAMINE
     Dosage: UNK UNK, BID
  15. LORATADINE [Concomitant]
     Active Substance: LORATADINE
     Indication: Paediatric acute-onset neuropsychiatric syndrome
     Dosage: 10 MILLIGRAM, QD
     Dates: start: 201810
  16. ADVAIR HFA [Concomitant]
     Active Substance: FLUTICASONE PROPIONATE\SALMETEROL XINAFOATE
     Dosage: UNK UNK, QD

REACTIONS (14)
  - Hypertransaminasaemia [Recovered/Resolved]
  - Tubulointerstitial nephritis [Recovered/Resolved]
  - Platelet count increased [Recovered/Resolved]
  - Anaemia [Recovered/Resolved]
  - Brain fog [Recovered/Resolved]
  - Product contamination physical [Unknown]
  - Product dose omission issue [Unknown]
  - Illness [Unknown]
  - Hyperhidrosis [Recovered/Resolved]
  - Malaise [Recovered/Resolved]
  - Dyspepsia [Recovered/Resolved]
  - Headache [Recovered/Resolved]
  - Fatigue [Recovered/Resolved]
  - Pyrexia [Recovered/Resolved]

NARRATIVE: CASE EVENT DATE: 20201025
